FAERS Safety Report 9438284 (Version 1)
Quarter: 2013Q3

REPORT INFORMATION
  Report Type: Spontaneous
  Country: DE (occurrence: DE)
  Receive Date: 20130802
  Receipt Date: 20130802
  Transmission Date: 20140515
  Serious: Yes (Other)
  Sender: FDA-Public Use
  Company Number: DE-JNJFOC-20130710540

PATIENT
  Age: 27 Year
  Sex: Female
  Weight: 58.4 kg

DRUGS (1)
  1. REMICADE [Suspect]
     Indication: ANKYLOSING SPONDYLITIS
     Dosage: ^PARTNER^S DOSING^
     Route: 065

REACTIONS (2)
  - Abortion missed [Unknown]
  - Exposure via father [Recovered/Resolved]
